FAERS Safety Report 4599677-X (Version None)
Quarter: 2005Q1

REPORT INFORMATION
  Report Type: 
  Country: None (occurrence: None)
  Receive Date: 20050304
  Receipt Date: 20050304
  Transmission Date: 20050727
  Serious: Yes (Other)
  Sender: FDA-Public Use
  Company Number: None

PATIENT
  Age: 87 Year
  Sex: Female
  Weight: 63.1 kg

DRUGS (6)
  1. ERLOTINIB [Suspect]
     Indication: NON-SMALL CELL LUNG CANCER
     Dosage: 150 MG PO QD
     Route: 048
     Dates: start: 20051217, end: 20050110
  2. ERLOTINIB [Suspect]
     Dosage: 100 MG PO QD
     Route: 048
     Dates: start: 20050128, end: 20050204
  3. CARDIZEM [Concomitant]
  4. VITAMIN SUPPLEMENTS [Concomitant]
  5. PRILOSEC [Concomitant]
  6. COLACE [Concomitant]

REACTIONS (2)
  - HYPERSENSITIVITY [None]
  - RASH [None]
